FAERS Safety Report 5089813-3 (Version None)
Quarter: 2006Q3

REPORT INFORMATION
  Report Type: 
  Country: None (occurrence: None)
  Receive Date: 20060828
  Receipt Date: 20060822
  Transmission Date: 20061208
  Serious: Yes (Other)
  Sender: FDA-Public Use
  Company Number: US-JNJFOC-20060805326

PATIENT
  Sex: Female
  Weight: 68.04 kg

DRUGS (7)
  1. REMICADE [Suspect]
  2. REMICADE [Suspect]
     Indication: RHEUMATOID ARTHRITIS
  3. METHOTREXATE [Concomitant]
  4. ACTONEL [Concomitant]
  5. MOBIC [Concomitant]
  6. THYROID TAB [Concomitant]
  7. BLOOD PRESSURE PILLS [Concomitant]

REACTIONS (1)
  - HIP FRACTURE [None]
